FAERS Safety Report 5083907-4 (Version None)
Quarter: 2006Q3

REPORT INFORMATION
  Report Type: 
  Country: None (occurrence: None)
  Receive Date: 20060727
  Receipt Date: 20060407
  Transmission Date: 20061208
  Serious: Yes (Other)
  Sender: FDA-Public Use
  Company Number: 2006051332

PATIENT
  Age: 79 Year
  Sex: Female
  Weight: 87.5442 kg

DRUGS (10)
  1. LYRICA [Suspect]
     Indication: NEUROPATHY
     Dosage: 100 MG (50 MG, 1 IN 1 D), ORAL
     Route: 048
     Dates: start: 20060403
  2. VERAPAMIL [Concomitant]
  3. AVALIDE [Concomitant]
  4. LIPITOR [Concomitant]
  5. ZETIA [Concomitant]
  6. NEXIUM [Concomitant]
  7. AMBIEN [Concomitant]
  8. MULTIVITAMIN [Concomitant]
  9. ZANTAC [Concomitant]
  10. ACETAMINOPHEN [Concomitant]

REACTIONS (7)
  - DISTURBANCE IN ATTENTION [None]
  - DIZZINESS [None]
  - FEELING ABNORMAL [None]
  - FEELING DRUNK [None]
  - GAIT DISTURBANCE [None]
  - SOMNOLENCE [None]
  - VISION BLURRED [None]
